FAERS Safety Report 9697590 (Version 1)
Quarter: 2013Q4

REPORT INFORMATION
  Report Type: Report from Study
  Country: FR (occurrence: FR)
  Receive Date: 20131120
  Receipt Date: 20131120
  Transmission Date: 20140711
  Serious: Yes (Hospitalization)
  Sender: FDA-Public Use
  Company Number: FR-ASTELLAS-2013EU010077

PATIENT
  Age: 86 Year
  Sex: Male
  Weight: 68 kg

DRUGS (7)
  1. ENZALUTAMIDE [Suspect]
     Indication: PROSTATE CANCER
     Dosage: 160 MG, UID/QD
     Route: 048
     Dates: start: 20130707, end: 20130929
  2. LASILIX                            /00032601/ [Concomitant]
     Indication: CARDIAC FAILURE
     Dosage: 40 MG, UID/QD
     Route: 048
  3. TRIATEC                            /00116401/ [Concomitant]
     Indication: CARDIAC FAILURE
     Dosage: 2.5 MG, UID/QD
     Route: 048
  4. HEMIGOXINE [Concomitant]
     Indication: ARRHYTHMIA
     Dosage: UNK
     Route: 048
  5. INNOHEP [Concomitant]
     Indication: CARDIAC FAILURE
     Dosage: UNK
     Route: 065
     Dates: start: 201305
  6. OGAST [Concomitant]
     Indication: GASTRITIS
     Dosage: 30 MG, UNKNOWN/D
     Route: 065
  7. KARDEGIC [Concomitant]
     Indication: ARRHYTHMIA
     Dosage: 75 MG, UNKNOWN/D
     Route: 065

REACTIONS (4)
  - General physical health deterioration [Not Recovered/Not Resolved]
  - Lung disorder [Recovered/Resolved]
  - Colitis [Recovering/Resolving]
  - Hypokalaemia [Recovered/Resolved]
